FAERS Safety Report 9831449 (Version 1)
Quarter: 2014Q1

REPORT INFORMATION
  Report Type: Spontaneous
  Country: IT (occurrence: IT)
  Receive Date: 20140121
  Receipt Date: 20140121
  Transmission Date: 20141002
  Serious: Yes (Hospitalization)
  Sender: FDA-Public Use
  Company Number: PHHY2014IT005791

PATIENT
  Age: 78 Year
  Sex: Male

DRUGS (5)
  1. ZOMETA [Suspect]
     Indication: PLASMA CELL MYELOMA
     Dosage: 4 MG, MONTHLY
     Route: 042
     Dates: start: 20120511, end: 20130430
  2. REVLIMID [Suspect]
     Indication: PLASMA CELL MYELOMA
     Dosage: 10 MG/ML, ON ALTERNATE DAYS
     Dates: start: 20130818, end: 20130918
  3. SOLDESAM [Suspect]
     Indication: PLASMA CELL MYELOMA
     Dosage: 0.2 %, 64 DROPS PER WEEK AND THEN 5-10 DROPS PER DAY
  4. CARDIOASPIRIN [Concomitant]
     Dosage: 100 MG, UNK
     Route: 048
  5. DIBASE [Concomitant]
     Dosage: 10000 U/ML, 20 DROPS
     Route: 048

REACTIONS (1)
  - Osteonecrosis of jaw [Recovered/Resolved with Sequelae]
